FAERS Safety Report 23868143 (Version 1)
Quarter: 2024Q2

REPORT INFORMATION
  Report Type: Report from Study
  Country: US (occurrence: US)
  Receive Date: 20240517
  Receipt Date: 20240517
  Transmission Date: 20240716
  Serious: Yes (Hospitalization, Other)
  Sender: FDA-Public Use
  Company Number: US-JNJFOC-20240529405

PATIENT
  Age: 31 Year
  Sex: Female

DRUGS (7)
  1. SPRAVATO [Suspect]
     Active Substance: ESKETAMINE
     Indication: Depression
     Dosage: 56 MG, TOTAL OF 4 DOSES
     Dates: start: 20230919, end: 20230927
  2. SPRAVATO [Suspect]
     Active Substance: ESKETAMINE
     Dosage: 84 MG, TOTAL OF 6 DOSES
     Dates: start: 20231008, end: 20231025
  3. SPRAVATO [Suspect]
     Active Substance: ESKETAMINE
     Dosage: 56 MG, TOTAL OF 3 DOSES
     Dates: start: 20231102, end: 20231129
  4. SPRAVATO [Suspect]
     Active Substance: ESKETAMINE
     Dosage: 84 MG, TOTAL OF 1 DOSE
     Dates: start: 20231205, end: 20231205
  5. SPRAVATO [Suspect]
     Active Substance: ESKETAMINE
     Dosage: 56 MG, TOTAL OF 2 DOSES
     Dates: start: 20231212, end: 20231228
  6. SPRAVATO [Suspect]
     Active Substance: ESKETAMINE
     Dosage: 84 MG, TOTAL OF 6 DOSES
     Dates: start: 20240102, end: 20240215
  7. SPRAVATO [Suspect]
     Active Substance: ESKETAMINE
     Dosage: 84 MG, TOTAL OF 1 DOSE
     Dates: start: 20240229, end: 20240229

REACTIONS (2)
  - Neoplasm malignant [Unknown]
  - Adverse event [Unknown]

NARRATIVE: CASE EVENT DATE: 20240229
